FAERS Safety Report 5740708-9 (Version None)
Quarter: 2008Q2

REPORT INFORMATION
  Report Type: 
  Country: None (occurrence: None)
  Receive Date: 20080516
  Receipt Date: 20080507
  Transmission Date: 20081010
  Serious: Yes (Hospitalization, Other)
  Sender: FDA-Public Use
  Company Number: US-PFIZER INC-2008040464

PATIENT
  Sex: Female
  Weight: 65.8 kg

DRUGS (4)
  1. NEURONTIN [Suspect]
     Indication: PAIN
  2. PROPULSID [Concomitant]
  3. PRILOSEC [Concomitant]
  4. MORPHINE [Concomitant]

REACTIONS (2)
  - FEELING ABNORMAL [None]
  - LOSS OF CONSCIOUSNESS [None]
